FAERS Safety Report 5781645-3 (Version None)
Quarter: 2008Q2

REPORT INFORMATION
  Report Type: 
  Country: None (occurrence: None)
  Receive Date: 20080623
  Receipt Date: 20070725
  Transmission Date: 20081010
  Serious: No
  Sender: FDA-Public Use
  Company Number: US-ASTRAZENECA-2007UW17930

PATIENT
  Age: 79 Year
  Sex: Male

DRUGS (1)
  1. RHINOCORT [Suspect]
     Indication: COUGH
     Route: 045
     Dates: start: 20070701

REACTIONS (1)
  - TINNITUS [None]
